FAERS Safety Report 8387767-5 (Version None)
Quarter: 2012Q2

REPORT INFORMATION
  Report Type: 
  Country: None (occurrence: None)
  Receive Date: 20120525
  Receipt Date: 20120514
  Transmission Date: 20120825
  Serious: Yes (Death, Hospitalization, Congenital Anomaly, Other)
  Sender: FDA-Public Use
  Company Number: NG-VIIV HEALTHCARE LIMITED-A0978659A

PATIENT
  Sex: Female

DRUGS (4)
  1. KALETRA [Suspect]
     Indication: HIV INFECTION
     Route: 064
     Dates: start: 20110304
  2. FORTOVASE [Suspect]
     Indication: HIV INFECTION
     Dosage: 1000MGD PER DAY
     Route: 064
     Dates: start: 20111207
  3. RALTEGRAVIR [Suspect]
     Indication: HIV INFECTION
     Dosage: 800MGD PER DAY
     Route: 064
     Dates: start: 20110304, end: 20111207
  4. COMBIVIR [Suspect]
     Indication: HIV INFECTION
     Route: 064
     Dates: start: 20111207

REACTIONS (11)
  - TACHYPNOEA [None]
  - HEPATOSPLENOMEGALY [None]
  - TACHYCARDIA [None]
  - TALIPES [None]
  - PREMATURE BABY [None]
  - FOETAL EXPOSURE DURING PREGNANCY [None]
  - DYSMORPHISM [None]
  - CONGENITAL MUSCULOSKELETAL ANOMALY [None]
  - TRISOMY 21 [None]
  - RESPIRATORY DISTRESS [None]
  - CONGENITAL EYE DISORDER [None]
